FAERS Safety Report 5824900-0 (Version None)
Quarter: 2008Q3

REPORT INFORMATION
  Report Type: 
  Country: None (occurrence: None)
  Receive Date: 20080728
  Receipt Date: 20080709
  Transmission Date: 20090109
  Serious: No
  Sender: FDA-Public Use
  Company Number: US-BOEHRINGER INGELHEIM GMBH, GERMANY-2008-BP-09962BP

PATIENT
  Sex: Female

DRUGS (20)
  1. SPIRIVA [Suspect]
     Indication: CHRONIC OBSTRUCTIVE PULMONARY DISEASE
     Dates: start: 20071101
  2. SPIRIVA [Suspect]
     Indication: EMPHYSEMA
  3. SPIRIVA [Suspect]
     Indication: DYSPNOEA
  4. ADVAIR DISKUS 100/50 [Concomitant]
     Indication: DYSPNOEA
  5. ALBUTEROL [Concomitant]
     Indication: DYSPNOEA
  6. ATROVENT HFA [Concomitant]
     Indication: DYSPNOEA
  7. OXYGEN [Concomitant]
     Route: 045
  8. SYSTANE [Concomitant]
     Indication: EYE DISORDER
     Dosage: 1 DROP EACH EYE
     Route: 031
  9. NEXIUM [Concomitant]
     Dosage: 1 CAPSULE DAILY
  10. DIOVAN [Concomitant]
  11. VERAPAMIL [Concomitant]
  12. MEVACOR [Concomitant]
  13. MAXZIDE [Concomitant]
  14. CALCIUM WITH D 600 MG [Concomitant]
  15. VENTOLIN HFA [Concomitant]
     Dosage: 2 PUFFS EVERY 6 HOURS
  16. ADVAIR DISKUS 100/50 [Concomitant]
     Dosage: 500/50; 1 PUFF EVERY 12 (TWICE DAILY)
  17. NAPROSYN [Concomitant]
     Dosage: 1 TABLET TWICE DAILY
  18. LACTATION 12% [Concomitant]
     Dosage: APPLY TWICE DAILY
  19. ALLEGRA [Concomitant]
     Dosage: 1 TABLET DAILY
  20. RESTASIS [Concomitant]
     Dosage: 1 DROP EACH EYE TWICE DAILY.
     Route: 031

REACTIONS (3)
  - DRUG EFFECT DECREASED [None]
  - DRUG INEFFECTIVE [None]
  - DYSPNOEA [None]
